FAERS Safety Report 5390922-X (Version None)
Quarter: 2007Q3

REPORT INFORMATION
  Report Type: 
  Country: None (occurrence: None)
  Receive Date: 20070716
  Receipt Date: 20070710
  Transmission Date: 20080115
  Serious: Yes (Other)
  Sender: FDA-Public Use
  Company Number: 2007326239

PATIENT
  Age: 85 Year
  Sex: Male

DRUGS (3)
  1. ROGAINE 5 [Suspect]
     Indication: ALOPECIA
     Dosage: 2 TIMES DAILY (2 IN 1 D), TOPICAL
     Route: 061
     Dates: start: 20070701, end: 20070709
  2. PREDNISONE TAB [Concomitant]
  3. LUNESTA (ESCOZPICLONE) [Concomitant]

REACTIONS (1)
  - BLOOD PRESSURE INCREASED [None]
